FAERS Safety Report 6078501-2 (Version None)
Quarter: 2009Q1

REPORT INFORMATION
  Report Type: 
  Country: None (occurrence: None)
  Receive Date: 20090211
  Receipt Date: 20090211
  Transmission Date: 20090719
  Serious: No
  Sender: FDA-Public Use
  Company Number: None

PATIENT
  Age: 56 Year
  Sex: Male
  Weight: 107.5025 kg

DRUGS (2)
  1. HALDOL [Suspect]
     Indication: ANGER
     Dosage: 2MG EVENINGS PO
     Route: 048
     Dates: start: 20090123, end: 20090210
  2. HALDOL [Suspect]
     Indication: BIPOLAR DISORDER
     Dosage: 2MG EVENINGS PO
     Route: 048
     Dates: start: 20090123, end: 20090210

REACTIONS (4)
  - HYPERTENSION [None]
  - INSOMNIA [None]
  - IRRITABILITY [None]
  - TREMOR [None]
